FAERS Safety Report 21056854 (Version 3)
Quarter: 2023Q1

REPORT INFORMATION
  Report Type: Spontaneous
  Country: US (occurrence: US)
  Receive Date: 20220708
  Receipt Date: 20230106
  Transmission Date: 20230418
  Serious: No
  Sender: FDA-Public Use
  Company Number: US-ALLERGAN-2219609US

PATIENT
  Sex: Female

DRUGS (1)
  1. QULIPTA [Suspect]
     Active Substance: ATOGEPANT
     Indication: Migraine with aura
     Dosage: UNK

REACTIONS (6)
  - Feeling abnormal [Unknown]
  - Disturbance in attention [Unknown]
  - Hot flush [Unknown]
  - Pain [Unknown]
  - Vision blurred [Unknown]
  - Nausea [Unknown]
